FAERS Safety Report 10173540 (Version 1)
Quarter: 2014Q2

REPORT INFORMATION
  Report Type: Spontaneous
  Country: US (occurrence: None)
  Receive Date: 20140415
  Receipt Date: 20140415
  Transmission Date: 20141212
  Serious: Yes (Hospitalization)
  Sender: FDA-Public Use
  Company Number: ALL1-2014-00932

PATIENT
  Age: 47 Year
  Sex: Male
  Weight: 79.4 kg

DRUGS (1)
  1. LIALDA [Suspect]
     Indication: COLITIS ULCERATIVE
     Dosage: 4 TABLETS, 1X/DAY:QD, ORAL
     Route: 048
     Dates: start: 201312, end: 20140203

REACTIONS (1)
  - Drug ineffective [None]
